FAERS Safety Report 12218024 (Version 2)
Quarter: 2016Q2

REPORT INFORMATION
  Report Type: Report from Study
  Country: US (occurrence: US)
  Receive Date: 20160329
  Receipt Date: 20160401
  Transmission Date: 20160815
  Serious: Yes (Hospitalization)
  Sender: FDA-Public Use
  Company Number: PHEH2016US007566

PATIENT
  Age: 39 Year
  Sex: Male
  Weight: 104.31 kg

DRUGS (3)
  1. GILENYA [Suspect]
     Active Substance: FINGOLIMOD HYDROCHLORIDE
     Indication: MULTIPLE SCLEROSIS
     Dosage: 0.5 MG, UNK
     Route: 048
     Dates: start: 20160324
  2. ATORVASTATIN [Concomitant]
     Active Substance: ATORVASTATIN
     Indication: PRODUCT USED FOR UNKNOWN INDICATION
     Dosage: 10 MG, UNK
     Route: 065
  3. VITAMIN D2 [Concomitant]
     Active Substance: ERGOCALCIFEROL
     Indication: PRODUCT USED FOR UNKNOWN INDICATION
     Dosage: UNK
     Route: 065

REACTIONS (8)
  - Fatigue [Unknown]
  - Musculoskeletal disorder [Unknown]
  - Muscular weakness [Recovered/Resolved]
  - Asthenia [Unknown]
  - Mobility decreased [Recovered/Resolved]
  - Heart rate decreased [Unknown]
  - Vision blurred [Unknown]
  - Thirst [Unknown]

NARRATIVE: CASE EVENT DATE: 20160324
